FAERS Safety Report 8711469 (Version 1)
Quarter: 2012Q4

REPORT INFORMATION
  Report Type: 
  Country: US (occurrence: US)
  Receive Date: 20120829
  Receipt Date: 20120829
  Transmission Date: 20130627
  Serious: Yes (Other)
  Sender: FDA-Public Use
  Company Number: US-ROCHE-1098185

PATIENT
  Sex: Female

DRUGS (2)
  1. XOLAIR [Suspect]
     Indication: ASTHMA
  2. XOLAIR [Suspect]
     Indication: BRONCHITIS

REACTIONS (3)
  - Wheezing [Unknown]
  - Malaise [Unknown]
  - Cough [Unknown]
